FAERS Safety Report 7646092-8 (Version None)
Quarter: 2011Q3

REPORT INFORMATION
  Report Type: 
  Country: None (occurrence: None)
  Receive Date: 20110801
  Receipt Date: 20110722
  Transmission Date: 20111222
  Serious: Yes (Hospitalization)
  Sender: FDA-Public Use
  Company Number: GR-BIOGENIDEC-2011BI027506

PATIENT
  Age: 42 Year
  Sex: Female

DRUGS (3)
  1. AVONEX [Suspect]
     Indication: MULTIPLE SCLEROSIS
     Route: 030
     Dates: end: 20110501
  2. AVONEX [Suspect]
     Route: 030
     Dates: start: 20110501, end: 20110701
  3. AVONEX [Suspect]
     Route: 030
     Dates: start: 20060501

REACTIONS (4)
  - LIVER INJURY [None]
  - MULTIPLE SCLEROSIS RELAPSE [None]
  - HEPATIC ENZYME INCREASED [None]
  - HEPATITIS A ANTIBODY POSITIVE [None]
